FAERS Safety Report 20168859 (Version 2)
Quarter: 2025Q1

REPORT INFORMATION
  Report Type: Spontaneous
  Country: US (occurrence: US)
  Receive Date: 20211210
  Receipt Date: 20250222
  Transmission Date: 20250409
  Serious: No
  Sender: SANOFI AVENTIS
  Company Number: US-SA-SAC20211207000533

PATIENT
  Age: 30 Year
  Sex: Female

DRUGS (4)
  1. DUPIXENT [Suspect]
     Active Substance: DUPILUMAB
     Indication: Dermatitis atopic
     Dosage: 300 MG, QOW
     Route: 058
  2. DUPIXENT [Suspect]
     Active Substance: DUPILUMAB
     Indication: Dermatitis atopic
  3. DUPIXENT [Suspect]
     Active Substance: DUPILUMAB
     Indication: Pruritus
  4. DUPIXENT [Suspect]
     Active Substance: DUPILUMAB
     Indication: Xerosis

REACTIONS (5)
  - Ear infection [Unknown]
  - Hypersensitivity [Unknown]
  - Eczema [Unknown]
  - Eye pruritus [Recovered/Resolved]
  - Product use in unapproved indication [Unknown]
